FAERS Safety Report 6037946-7 (Version None)
Quarter: 2009Q1

REPORT INFORMATION
  Report Type: 
  Country: None (occurrence: None)
  Receive Date: 20090115
  Receipt Date: 20090105
  Transmission Date: 20090719
  Serious: Yes (Death)
  Sender: FDA-Public Use
  Company Number: US-WYE-H07562709

PATIENT
  Age: 37 Year
  Sex: Male

DRUGS (13)
  1. PHENERGAN HCL [Suspect]
     Dosage: UNKNOWN
     Route: 048
     Dates: end: 20070101
  2. BACLOFEN [Suspect]
     Dosage: UNKNOWN
     Route: 048
     Dates: end: 20070101
  3. METHADONE HCL [Suspect]
     Dosage: UNKNOWN
     Route: 048
     Dates: end: 20070101
  4. DULOXETINE [Suspect]
     Dosage: UNKNOWN
     Route: 048
     Dates: end: 20070101
  5. CLONAZEPAM [Suspect]
     Dosage: UNKNOWN
     Route: 048
     Dates: end: 20070101
  6. EMTRICITABINE/TENOFOVIR DISOPROXIL FUMARATE [Suspect]
     Dosage: UNKOWN
     Route: 048
     Dates: end: 20070101
  7. LITHIUM [Suspect]
     Dosage: UNKNOWN
     Route: 048
     Dates: end: 20070101
  8. LEVOTHYROXINE SODIUM [Suspect]
     Dosage: UNKNOWN
     Route: 048
     Dates: end: 20070101
  9. LAMOTRIGINE [Suspect]
     Dosage: UNKNOWN
     Route: 048
     Dates: end: 20070101
  10. EFAVIRENZ [Suspect]
     Dosage: UNKNOWN
     Route: 048
     Dates: end: 20070101
  11. BUPROPION HYDROCHLORIDE [Suspect]
     Dosage: UNKNOWN
     Route: 048
     Dates: end: 20070101
  12. QUETIAPINE FUMARATE [Suspect]
     Dosage: UNKNOWN
     Route: 048
     Dates: end: 20070101
  13. ZOLPIDEM [Suspect]
     Dosage: UNKNOWN
     Route: 048
     Dates: end: 20070101

REACTIONS (1)
  - COMPLETED SUICIDE [None]
